FAERS Safety Report 16968151 (Version 2)
Quarter: 2019Q4

REPORT INFORMATION
  Report Type: Report from Study
  Country: CA (occurrence: CA)
  Receive Date: 20191028
  Receipt Date: 20191029
  Transmission Date: 20200122
  Serious: Yes (Other)
  Sender: FDA-Public Use
  Company Number: CA-BIOGEN-2019BI00798174

PATIENT
  Age: 39 Year
  Sex: Female

DRUGS (1)
  1. TYSABRI [Suspect]
     Active Substance: NATALIZUMAB
     Indication: PRODUCT USED FOR UNKNOWN INDICATION
     Dosage: INFUSED OVER 1 HOUR
     Route: 042
     Dates: start: 20160119

REACTIONS (5)
  - Abortion spontaneous [Not Recovered/Not Resolved]
  - Insomnia [Unknown]
  - Maternal exposure during pregnancy [Unknown]
  - Haemorrhage in pregnancy [Unknown]
  - Abdominal pain [Unknown]

NARRATIVE: CASE EVENT DATE: 20191014
